FAERS Safety Report 4654250-X (Version None)
Quarter: 2005Q2

REPORT INFORMATION
  Report Type: 
  Country: None (occurrence: None)
  Receive Date: 20050404
  Receipt Date: 20041213
  Transmission Date: 20051028
  Serious: No
  Sender: FDA-Public Use
  Company Number: USA041286042

PATIENT
  Sex: Female

DRUGS (5)
  1. CYMBALTA [Suspect]
     Indication: ANXIETY
     Dosage: 30 MG DAY
     Dates: start: 20041213
  2. CYMBALTA [Suspect]
     Indication: STRESS
     Dosage: 30 MG DAY
     Dates: start: 20041213
  3. PROZAC [Suspect]
  4. BLOOD PRESSURE MEDICATION [Concomitant]
  5. XANAX (ALPRAZOLAM DUM) [Concomitant]

REACTIONS (7)
  - BLOOD PRESSURE INCREASED [None]
  - DECREASED ACTIVITY [None]
  - DIZZINESS [None]
  - FEELING ABNORMAL [None]
  - NAUSEA [None]
  - TREMOR [None]
  - WEIGHT DECREASED [None]
